FAERS Safety Report 7216962-3 (Version None)
Quarter: 2010Q4

REPORT INFORMATION
  Report Type: 
  Country: None (occurrence: None)
  Receive Date: 20101223
  Receipt Date: 20101215
  Transmission Date: 20110411
  Serious: Yes (Other)
  Sender: FDA-Public Use
  Company Number: 2010SP065136

PATIENT
  Age: 28 Year
  Sex: Male

DRUGS (2)
  1. PEG-INTRON [Suspect]
     Indication: CHRONIC HEPATITIS
     Dosage: ;SC
     Route: 058
  2. REBETOL [Suspect]
     Indication: HEPATITIS B
     Dosage: ; PO
     Route: 048

REACTIONS (3)
  - CONDITION AGGRAVATED [None]
  - HEPATITIS [None]
  - HEPATITIS B DNA INCREASED [None]
